FAERS Safety Report 10232699 (Version 1)
Quarter: 2014Q2

REPORT INFORMATION
  Report Type: Spontaneous
  Country: US (occurrence: None)
  Receive Date: 20140611
  Receipt Date: 20140611
  Transmission Date: 20141212
  Serious: Yes (Disabling)
  Sender: FDA-Public Use
  Company Number: None

PATIENT
  Age: 54 Year
  Sex: Female
  Weight: 74.84 kg

DRUGS (2)
  1. LITHIUM CARBONATE [Suspect]
     Indication: BIPOLAR DISORDER
     Dosage: 600/MG, TWICE DAILY, TAKEN BY MOUTH
     Route: 048
     Dates: start: 19980101, end: 20131113
  2. PAROXETINE [Suspect]
     Indication: DEPRESSION
     Dosage: 1 TABLET, ONCE DAILY, TAKEN BY MOUTH
     Route: 048
     Dates: start: 20120206, end: 20131113

REACTIONS (2)
  - Paraesthesia [None]
  - Neuropathy peripheral [None]
